FAERS Safety Report 9394724 (Version 1)
Quarter: 2013Q3

REPORT INFORMATION
  Report Type: Report from Study
  Country: FR (occurrence: FR)
  Receive Date: 20130711
  Receipt Date: 20130711
  Transmission Date: 20140515
  Serious: Yes (Hospitalization)
  Sender: FDA-Public Use
  Company Number: FR-ROCHE-786430

PATIENT
  Age: 71 Year
  Sex: Female
  Weight: 70 kg

DRUGS (36)
  1. TOCILIZUMAB [Suspect]
     Indication: RHEUMATOID ARTHRITIS
     Route: 042
  2. TOCILIZUMAB [Suspect]
     Route: 042
  3. TOCILIZUMAB [Suspect]
     Route: 065
  4. TOCILIZUMAB [Suspect]
     Route: 065
  5. TOCILIZUMAB [Suspect]
     Route: 065
  6. TOCILIZUMAB [Suspect]
     Route: 065
  7. TOCILIZUMAB [Suspect]
     Route: 065
  8. TOCILIZUMAB [Suspect]
     Route: 065
  9. TOCILIZUMAB [Suspect]
     Route: 065
  10. TOCILIZUMAB [Suspect]
     Route: 065
  11. TOCILIZUMAB [Suspect]
     Route: 065
  12. TOCILIZUMAB [Suspect]
     Route: 065
  13. TOCILIZUMAB [Suspect]
     Route: 065
  14. CALCIDOSE [Concomitant]
     Route: 065
  15. ALPRESS LP [Concomitant]
     Route: 065
  16. SOLUPRED (FRANCE) [Concomitant]
     Indication: RHEUMATOID ARTHRITIS
     Route: 065
  17. CORTANCYL [Concomitant]
     Route: 065
     Dates: start: 20110114
  18. CORTANCYL [Concomitant]
     Route: 065
     Dates: start: 20110302
  19. CORTANCYL [Concomitant]
     Route: 065
     Dates: start: 20110424
  20. CORTANCYL [Concomitant]
     Route: 065
     Dates: start: 20110524
  21. CORTANCYL [Concomitant]
     Route: 065
     Dates: start: 20110701
  22. CORTANCYL [Concomitant]
     Route: 065
     Dates: start: 20110801
  23. CORTANCYL [Concomitant]
     Dosage: 1MG/DAY EVERY 15 DAYS
     Route: 065
     Dates: start: 20110830
  24. CORTANCYL [Concomitant]
     Route: 065
     Dates: start: 20120214
  25. CORTANCYL [Concomitant]
     Route: 065
  26. COTAREG [Concomitant]
     Route: 065
  27. IPERTEN [Concomitant]
     Route: 065
  28. TEMERIT [Concomitant]
     Route: 065
  29. TEMERIT [Concomitant]
     Route: 065
  30. PRAVASTATINE [Concomitant]
     Route: 065
  31. EUPANTOL [Concomitant]
     Route: 065
  32. RASILEZ [Concomitant]
     Route: 065
  33. EFFERALGAN [Concomitant]
     Route: 065
  34. TAREG [Concomitant]
     Route: 065
  35. ESIDREX [Concomitant]
     Route: 065
  36. LANSOPRAZOLE [Concomitant]
     Route: 065

REACTIONS (18)
  - Calculus bladder [Recovered/Resolved]
  - Pancreatitis [Recovered/Resolved]
  - Infection [Unknown]
  - Adrenal adenoma [Not Recovered/Not Resolved]
  - Adrenal mass [Not Recovered/Not Resolved]
  - Cholecystectomy [Recovered/Resolved]
  - Sinus operation [Recovered/Resolved]
  - Vitamin D deficiency [Unknown]
  - Asthenia [Not Recovered/Not Resolved]
  - Diarrhoea [Unknown]
  - Cough [Unknown]
  - Productive cough [Unknown]
  - Urinary tract infection [Recovered/Resolved]
  - Sinusitis [Recovered/Resolved]
  - Tooth extraction [Recovered/Resolved]
  - Paronychia [Recovered/Resolved with Sequelae]
  - Sinusitis [Recovered/Resolved]
  - Injury [Recovered/Resolved with Sequelae]
